FAERS Safety Report 9772038 (Version 3)
Quarter: 2014Q1

REPORT INFORMATION
  Report Type: Spontaneous
  Country: TW (occurrence: TW)
  Receive Date: 20131219
  Receipt Date: 20140324
  Transmission Date: 20141002
  Serious: Yes (Death, Life-Threatening, Hospitalization, Other)
  Sender: FDA-Public Use
  Company Number: TW-MPIJNJ-2013JNJ001263

PATIENT
  Sex: 0

DRUGS (36)
  1. VELCADE [Suspect]
     Indication: PLASMA CELL MYELOMA
     Dosage: 1.3 MG/M2, UNK
     Route: 058
     Dates: start: 20130215, end: 20130527
  2. DEXAMETHASONE [Suspect]
     Indication: PLASMA CELL MYELOMA
     Dosage: 20 MG, UNK
     Route: 048
     Dates: start: 20130215, end: 20130528
  3. ALGINIC ACID [Concomitant]
     Dosage: UNK
     Dates: start: 20130524
  4. LOPERAMIDE HYDROCHLORIDE [Concomitant]
     Dosage: UNK
     Dates: start: 20130524
  5. HYOSCINE BUTYLBROMIDE [Concomitant]
     Dosage: UNK
     Dates: start: 20130524
  6. MELOXICAM [Concomitant]
     Dosage: UNK
     Dates: start: 20130524
  7. AMIODARONE HYDROCHLORIDE [Concomitant]
     Dosage: UNK
     Dates: start: 20130524
  8. KAOLIN [Concomitant]
     Dosage: UNK
     Dates: start: 20130524
  9. DEXTROSE ELECTROLYTE DM 3AG [Concomitant]
     Dosage: UNK
     Dates: start: 20130524
  10. SODIUM CHLORIDE [Concomitant]
     Dosage: UNK
     Dates: start: 20130524
  11. CORDARONE [Concomitant]
     Dosage: UNK
     Dates: start: 20130501
  12. HERBESSER [Concomitant]
     Dosage: UNK
     Dates: start: 20130524
  13. ALPRAZOLAM [Concomitant]
  14. MIDAZOLAM [Concomitant]
  15. LORAZEPAM [Concomitant]
  16. QUETIAPINE [Concomitant]
  17. PROPOFOL [Concomitant]
  18. FENTANYL [Concomitant]
  19. PIRACETAM [Concomitant]
  20. FLUMAZENIL [Concomitant]
  21. WARFARIN [Concomitant]
  22. UROKINASE [Concomitant]
  23. DIGOXIN [Concomitant]
  24. OMEPRAZOLE [Concomitant]
  25. HALOPERIDOL [Concomitant]
  26. DIMETHICONE [Concomitant]
  27. DILTIAZEM [Concomitant]
  28. MIDORINE [Concomitant]
  29. MORPHINE [Concomitant]
  30. ACETAMINOPHEN [Concomitant]
  31. TRAMADOL [Concomitant]
  32. KETOPROFEN [Concomitant]
  33. LOPERAMIDE [Concomitant]
  34. CARVEDILOL [Concomitant]
  35. MESNA [Concomitant]
  36. LONZUMIN [Concomitant]

REACTIONS (4)
  - Sepsis [Fatal]
  - Infection [Recovered/Resolved]
  - Platelet count decreased [Recovered/Resolved]
  - Altered state of consciousness [Not Recovered/Not Resolved]
